FAERS Safety Report 11171637 (Version 1)
Quarter: 2015Q2

REPORT INFORMATION
  Report Type: Spontaneous
  Country: US (occurrence: US)
  Receive Date: 20150608
  Receipt Date: 20150608
  Transmission Date: 20150821
  Serious: No
  Sender: FDA-Public Use
  Company Number: US-DRREDDYS-USA/USA/14/0042701

PATIENT
  Age: 59 Year
  Sex: Female
  Weight: 58.9 kg

DRUGS (2)
  1. FEXOFENADINE HCL [Suspect]
     Active Substance: FEXOFENADINE HYDROCHLORIDE
     Indication: SINUS DISORDER
  2. FEXOFENADINE HCL [Suspect]
     Active Substance: FEXOFENADINE HYDROCHLORIDE
     Indication: HYPERSENSITIVITY
     Route: 065
     Dates: start: 20140823, end: 20140825

REACTIONS (4)
  - Dyspnoea [Unknown]
  - Product quality issue [Unknown]
  - Nasal congestion [Unknown]
  - Drug ineffective [Unknown]
